FAERS Safety Report 10578606 (Version 1)
Quarter: 2014Q4

REPORT INFORMATION
  Report Type: Spontaneous
  Country: US (occurrence: None)
  Receive Date: 20141111
  Receipt Date: 20141111
  Transmission Date: 20150529
  Serious: No
  Sender: FDA-Public Use
  Company Number: None

PATIENT
  Age: 50 Year
  Sex: Female
  Weight: 79.38 kg

DRUGS (1)
  1. OMEPRAZOLE DELAYED RELEASE [Suspect]
     Active Substance: OMEPRAZOLE
     Dosage: 1 CAPSULE IN AM ONCE DAILY

REACTIONS (5)
  - Product quality issue [None]
  - Product substitution issue [None]
  - Drug ineffective [None]
  - Product physical issue [None]
  - Disease recurrence [None]

NARRATIVE: CASE EVENT DATE: 20141110
